FAERS Safety Report 4559627-9 (Version None)
Quarter: 2005Q1

REPORT INFORMATION
  Report Type: 
  Country: None (occurrence: None)
  Receive Date: 20050113
  Receipt Date: 20041004
  Transmission Date: 20050727
  Serious: Yes (Hospitalization)
  Sender: FDA-Public Use
  Company Number: 382401

PATIENT
  Age: 47 Year
  Sex: Male
  Weight: 68 kg

DRUGS (3)
  1. FUZEON [Suspect]
     Indication: HIV INFECTION
     Dosage: 90 MG   2 PER DAY    SUBCUTANEOUS
     Route: 058
     Dates: start: 20040815
  2. KALETRA [Concomitant]
  3. TRIZIVIR [Concomitant]

REACTIONS (5)
  - ANOREXIA [None]
  - INJECTION SITE PAIN [None]
  - PNEUMONIA MYCOPLASMAL [None]
  - PYREXIA [None]
  - WEIGHT DECREASED [None]
